FAERS Safety Report 4546250-5 (Version None)
Quarter: 2005Q1

REPORT INFORMATION
  Report Type: 
  Country: None (occurrence: None)
  Receive Date: 20050103
  Receipt Date: 20041221
  Transmission Date: 20050727
  Serious: Yes (Other)
  Sender: FDA-Public Use
  Company Number: 2004112479

PATIENT
  Age: 84 Year
  Sex: Male

DRUGS (9)
  1. UNASYN [Suspect]
     Indication: PNEUMONIA ASPIRATION
     Dosage: 6 GRAM (3 GRAM, 2 IN 1 D), INTRAVENOUS
     Route: 042
     Dates: start: 20041022, end: 20041130
  2. ARBEKACIN (ARBEKACIN) [Suspect]
     Indication: PNEUMONIA ASPIRATION
     Dosage: 200 MG (200 MG, 1 IN 1 D), INTRAVENOUS
     Route: 042
     Dates: start: 20041120, end: 20041203
  3. TIENAM (CILASTATIN, IMIPENEM) [Suspect]
     Indication: PNEUMONIA ASPIRATION
     Dosage: 1 GRAM (0.5 GRAM, 2 IN 1 D), INTRAVENOUS
     Route: 042
     Dates: start: 20041116, end: 20041119
  4. FAMOTIDINE [Concomitant]
  5. POTACOL-R (CALCIUM CHLORIDE ANHYDROUS, MALTOSE, POTASSIUM CHLORIDE, SO [Concomitant]
  6. ALL OTHER THERAPEUTIC PRODUCTS (ALL OTHER THERAPEUTIC PRODUCTS) [Concomitant]
  7. NEUROBION FOR INJECTION (CYANOCOBALAMIN, PYRIDOXINE HYDROCHLORIDE, THI [Concomitant]
  8. MINERAL TAB [Concomitant]
  9. CEFOTIAM HYDROCHLORIDE [Concomitant]

REACTIONS (5)
  - DISEASE RECURRENCE [None]
  - PANCYTOPENIA [None]
  - PLATELET COUNT INCREASED [None]
  - PNEUMONIA ASPIRATION [None]
  - PNEUMONIA STAPHYLOCOCCAL [None]
